FAERS Safety Report 13278338 (Version 1)
Quarter: 2017Q1

REPORT INFORMATION
  Report Type: Report from Study
  Country: CA (occurrence: CA)
  Receive Date: 20170228
  Receipt Date: 20170228
  Transmission Date: 20170428
  Serious: Yes (Other)
  Sender: FDA-Public Use
  Company Number: CA-BEH-2017078460

PATIENT
  Age: 28 Year
  Sex: Female

DRUGS (1)
  1. HIZENTRA [Suspect]
     Active Substance: HUMAN IMMUNOGLOBULIN G
     Indication: SECONDARY IMMUNODEFICIENCY
     Dosage: 50 ML, QW
     Route: 058
     Dates: start: 201203

REACTIONS (3)
  - Abasia [Unknown]
  - Abdominal pain upper [Unknown]
  - Pain in extremity [Unknown]

NARRATIVE: CASE EVENT DATE: 201210
